FAERS Safety Report 21489783 (Version 1)
Quarter: 2022Q4

REPORT INFORMATION
  Report Type: Spontaneous
  Country: JP (occurrence: JP)
  Receive Date: 20221021
  Receipt Date: 20221021
  Transmission Date: 20230113
  Serious: Yes (Other)
  Sender: FDA-Public Use
  Company Number: JP-ALXN-A202212639AA

PATIENT
  Age: 69 Year
  Sex: Male
  Weight: 54 kg

DRUGS (4)
  1. SOLIRIS [Suspect]
     Active Substance: ECULIZUMAB
     Indication: Paroxysmal nocturnal haemoglobinuria
     Dosage: 600 MG, QW
     Route: 042
     Dates: start: 20161214, end: 20170104
  2. SOLIRIS [Suspect]
     Active Substance: ECULIZUMAB
     Dosage: 900 MG, Q2W
     Route: 042
     Dates: start: 20170111
  3. LANSOPRAZOLE [Concomitant]
     Active Substance: LANSOPRAZOLE
     Indication: Prophylaxis
     Dosage: 15 MG, QD
     Route: 048
     Dates: start: 20170115
  4. PREDONINE [Concomitant]
     Active Substance: PREDNISOLONE
     Indication: Paroxysmal nocturnal haemoglobinuria
     Dosage: 20 MG/DAY
     Route: 065
     Dates: start: 20161102

REACTIONS (1)
  - Neuropathy peripheral [Unknown]

NARRATIVE: CASE EVENT DATE: 20170101
